FAERS Safety Report 11060018 (Version 3)
Quarter: 2015Q2

REPORT INFORMATION
  Report Type: Report from Study
  Country: DE (occurrence: DE)
  Receive Date: 20150423
  Receipt Date: 20150618
  Transmission Date: 20150821
  Serious: Yes (Hospitalization)
  Sender: FDA-Public Use
  Company Number: DE-TEVA-555700GER

PATIENT
  Age: 74 Year
  Sex: Female
  Weight: 75 kg

DRUGS (20)
  1. TORASEMID [Concomitant]
     Active Substance: TORSEMIDE
     Indication: HYPERTENSION
     Route: 048
  2. THYROX 50 [Concomitant]
     Indication: THYROIDECTOMY
     Route: 048
  3. PRAMIPEXOL [Concomitant]
     Active Substance: PRAMIPEXOLE
     Indication: RESTLESS LEGS SYNDROME
     Route: 048
  4. ONDANSETRON [Concomitant]
     Active Substance: ONDANSETRON
     Route: 065
  5. PREDNISONE. [Suspect]
     Active Substance: PREDNISONE
     Indication: NON-HODGKIN^S LYMPHOMA
     Route: 048
     Dates: start: 20150203, end: 20150207
  6. RESTEX 100 [Concomitant]
     Indication: RESTLESS LEGS SYNDROME
     Route: 048
  7. ZOPICLON [Concomitant]
     Active Substance: ZOPICLONE
     Dosage: INTERMITTENT
     Route: 048
     Dates: start: 20150119
  8. SIMVA 20 [Concomitant]
     Indication: HYPERCHOLESTEROLAEMIA
     Route: 048
  9. BISO [Concomitant]
     Indication: HYPERTENSION
     Route: 048
  10. SPIRONOLACTON [Concomitant]
     Active Substance: SPIRONOLACTONE
     Indication: HYPERTENSION
     Route: 048
  11. ACARA 35 MG [Concomitant]
     Route: 048
     Dates: start: 20131211
  12. UROMITEXAN [Concomitant]
     Active Substance: MESNA
     Route: 065
  13. LONQUEX [Suspect]
     Active Substance: LIPEGFILGRASTIM
     Dosage: 0 MILLIGRAM DAILY; ON DAY 3 OF CYCLE
     Route: 058
  14. RITUXIMAB [Suspect]
     Active Substance: RITUXIMAB
     Indication: NON-HODGKIN^S LYMPHOMA
     Route: 042
     Dates: start: 20150202
  15. CYCLOPHOSPHAMIDE. [Suspect]
     Active Substance: CYCLOPHOSPHAMIDE
     Indication: NON-HODGKIN^S LYMPHOMA
     Route: 042
     Dates: start: 20150203
  16. DOXORUBICIN [Suspect]
     Active Substance: DOXORUBICIN
     Indication: NON-HODGKIN^S LYMPHOMA
     Route: 042
     Dates: start: 20150203
  17. DOMPERIDON [Concomitant]
     Active Substance: DOMPERIDONE
     Route: 048
  18. RISEDRONAT [Concomitant]
     Route: 065
     Dates: start: 20131211
  19. NEULASTA [Suspect]
     Active Substance: PEGFILGRASTIM
     Indication: PROPHYLAXIS
     Dosage: LAST DOSE PRIOR TO SAE: 09-APR-2015
     Route: 058
     Dates: start: 20150204
  20. VINCRISTINE [Suspect]
     Active Substance: VINCRISTINE
     Indication: NON-HODGKIN^S LYMPHOMA
     Route: 042
     Dates: start: 20150203

REACTIONS (1)
  - Atrial fibrillation [Recovered/Resolved]

NARRATIVE: CASE EVENT DATE: 20150414
